FAERS Safety Report 15626537 (Version 1)
Quarter: 2018Q4

REPORT INFORMATION
  Report Type: Spontaneous
  Country: GB (occurrence: GB)
  Receive Date: 20181116
  Receipt Date: 20181116
  Transmission Date: 20190205
  Serious: Yes (Hospitalization)
  Sender: FDA-Public Use
  Company Number: GB-TEVA-2018-GB-975891

PATIENT
  Age: 82 Year
  Sex: Male
  Weight: 96 kg

DRUGS (7)
  1. CALCICHEW D3 [Concomitant]
     Active Substance: CALCIUM\CHOLECALCIFEROL
     Route: 065
  2. LANSOPRAZOLE. [Concomitant]
     Active Substance: LANSOPRAZOLE
     Route: 065
  3. FLUCLOXACILLIN SODIUM MONOHYDRATE [Concomitant]
     Active Substance: FLUCLOXACILLIN SODIUM MONOHYDRATE
     Route: 065
  4. WARFARIN [Suspect]
     Active Substance: WARFARIN
     Indication: THROMBOSIS PROPHYLAXIS
     Route: 048
  5. TAMSULOSIN HYDROCHLORIDE. [Concomitant]
     Active Substance: TAMSULOSIN HYDROCHLORIDE
     Route: 065
  6. FUROSEMIDE. [Concomitant]
     Active Substance: FUROSEMIDE
     Route: 065
  7. ALENDRONIC ACID [Concomitant]
     Active Substance: ALENDRONIC ACID
     Route: 065

REACTIONS (5)
  - Haematemesis [Unknown]
  - Deep vein thrombosis [Recovering/Resolving]
  - Anal incontinence [Unknown]
  - Chills [Unknown]
  - Confusional state [Unknown]

NARRATIVE: CASE EVENT DATE: 20181008
